FAERS Safety Report 6509477-9 (Version None)
Quarter: 2009Q4

REPORT INFORMATION
  Report Type: 
  Country: None (occurrence: None)
  Receive Date: 20091217
  Receipt Date: 20091202
  Transmission Date: 20100525
  Serious: Yes (Life-Threatening, Hospitalization)
  Sender: FDA-Public Use
  Company Number: DSA_42145_2009

PATIENT
  Sex: Female
  Weight: 38 kg

DRUGS (7)
  1. DILTIAZEM HYDROCHLORIDE [Suspect]
     Indication: HYPERTENSION
     Dosage: (12 MCG/KG/MIN INTRAVENOUS (NOT OTHERWISE SPECIFIED))
     Route: 042
     Dates: start: 20090303, end: 20090303
  2. SEVOFLURANE [Suspect]
     Indication: INDUCTION OF ANAESTHESIA
     Dosage: (6% RESPIRATORY (INHALATION))
     Route: 055
     Dates: start: 20090303, end: 20090303
  3. ISOFLURANE [Suspect]
     Indication: MAINTENANCE OF ANAESTHESIA
     Dosage: (1% RESPIRATORY (INHALATION))
     Route: 055
     Dates: start: 20090303, end: 20090303
  4. NICARDIPINE HYDROCHLORIDE [Concomitant]
  5. NITROUS OXIDE [Concomitant]
  6. OXYGEN [Concomitant]
  7. VECURONIUM BROMIDE [Concomitant]

REACTIONS (5)
  - BLOOD PRESSURE SYSTOLIC DECREASED [None]
  - BRADYCARDIA [None]
  - CARDIAC ARREST [None]
  - HEADACHE [None]
  - SUBARACHNOID HAEMORRHAGE [None]
